FAERS Safety Report 4639648-8 (Version None)
Quarter: 2005Q2

REPORT INFORMATION
  Report Type: 
  Country: None (occurrence: None)
  Receive Date: 20050328
  Receipt Date: 20041217
  Transmission Date: 20051028
  Serious: No
  Sender: FDA-Public Use
  Company Number: USA041286456

PATIENT
  Sex: Male
  Weight: 35 kg

DRUGS (1)
  1. STRATTERA [Suspect]
     Dosage: 18 MG DAY
     Dates: start: 20041216

REACTIONS (2)
  - DISTURBANCE IN ATTENTION [None]
  - FATIGUE [None]
